FAERS Safety Report 13615323 (Version 1)
Quarter: 2017Q2

REPORT INFORMATION
  Report Type: Spontaneous
  Country: US (occurrence: US)
  Receive Date: 20170605
  Receipt Date: 20170605
  Transmission Date: 20170830
  Serious: Yes (Other)
  Sender: FDA-Public Use
  Company Number: None

PATIENT
  Age: 70 Year
  Sex: Male
  Weight: 94.5 kg

DRUGS (10)
  1. BYSTOLIC [Suspect]
     Active Substance: NEBIVOLOL HYDROCHLORIDE
     Indication: HYPERTENSION
     Dosage: ?          QUANTITY:1 TABLET(S);?
     Route: 048
     Dates: end: 20170519
  2. DUSTASTERIDE [Concomitant]
  3. TRULICITY [Concomitant]
     Active Substance: DULAGLUTIDE
  4. JANUVIA [Concomitant]
     Active Substance: SITAGLIPTIN PHOSPHATE
  5. ENALAPRIL [Concomitant]
     Active Substance: ENALAPRIL
  6. REPATHA [Concomitant]
     Active Substance: EVOLOCUMAB
  7. ASPIRIN. [Concomitant]
     Active Substance: ASPIRIN
  8. EFFIENT [Suspect]
     Active Substance: PRASUGREL HYDROCHLORIDE
     Indication: ANTICOAGULANT THERAPY
     Route: 048
     Dates: start: 20160707, end: 20170519
  9. LANTUS [Concomitant]
     Active Substance: INSULIN GLARGINE
  10. FENOFIBRIC ACID. [Concomitant]
     Active Substance: FENOFIBRIC ACID

REACTIONS (2)
  - Manufacturing product shipping issue [None]
  - Incorrect product storage [None]

NARRATIVE: CASE EVENT DATE: 20170508
